FAERS Safety Report 12076407 (Version 1)
Quarter: 2016Q1

REPORT INFORMATION
  Report Type: Spontaneous
  Country: FR (occurrence: FR)
  Receive Date: 20160215
  Receipt Date: 20160215
  Transmission Date: 20160526
  Serious: Yes (Hospitalization)
  Sender: FDA-Public Use
  Company Number: FR-ACCORD-037933

PATIENT
  Age: 70 Year
  Sex: Female

DRUGS (4)
  1. CARBOPLATINE ACCORD [Suspect]
     Active Substance: CARBOPLATIN
     Indication: NEOPLASM MALIGNANT
     Route: 042
     Dates: start: 20150901
  2. DESLORATADINE. [Suspect]
     Active Substance: DESLORATADINE
     Indication: ALLERGY PROPHYLAXIS
     Dosage: LAST ADMINISTRATION DATE: 05-JAN-2016
     Route: 048
     Dates: start: 20160104
  3. PACLITAXEL AHCL [Suspect]
     Active Substance: PACLITAXEL
     Indication: NEOPLASM MALIGNANT
     Route: 042
     Dates: start: 20150901
  4. ONDANSETRON [Suspect]
     Active Substance: ONDANSETRON
     Indication: PROPHYLAXIS OF NAUSEA AND VOMITING
     Dosage: LAST ADMINISTRATION DATE: 05-JAN-2016
     Route: 065
     Dates: start: 20160105

REACTIONS (3)
  - Dyspnoea [Recovered/Resolved]
  - Erythema [Recovered/Resolved]
  - Nausea [Recovered/Resolved]

NARRATIVE: CASE EVENT DATE: 20160105
